FAERS Safety Report 17759405 (Version 2)
Quarter: 2020Q2

REPORT INFORMATION
  Report Type: Spontaneous
  Country: US (occurrence: US)
  Receive Date: 20200508
  Receipt Date: 20200519
  Transmission Date: 20200714
  Serious: Yes (Hospitalization, Other)
  Sender: FDA-Public Use
  Company Number: US-AUROBINDO-AUR-APL-2020-022346

PATIENT
  Age: 77 Year
  Sex: Female

DRUGS (5)
  1. LEVETIRACETAM. [Suspect]
     Active Substance: LEVETIRACETAM
     Indication: EPILEPSY
     Dosage: INITIAL DOSE
     Route: 065
  2. MIRTAZAPINE. [Concomitant]
     Active Substance: MIRTAZAPINE
     Indication: MAJOR DEPRESSION
     Dosage: UNK
     Route: 065
  3. SERTRALINE [Concomitant]
     Active Substance: SERTRALINE HYDROCHLORIDE
     Indication: DEPRESSION
  4. LEVETIRACETAM. [Suspect]
     Active Substance: LEVETIRACETAM
     Indication: ELECTROENCEPHALOGRAM ABNORMAL
     Dosage: 500 MILLIGRAM, TWO TIMES A DAY, WHILE MODIFYING THE PATIENT?S ANTIDE
     Route: 065
  5. SERTRALINE [Concomitant]
     Active Substance: SERTRALINE HYDROCHLORIDE
     Indication: ANTIDEPRESSANT THERAPY
     Dosage: UNK
     Route: 065

REACTIONS (15)
  - Anxiety [Recovered/Resolved]
  - Abulia [Recovering/Resolving]
  - Inappropriate affect [Recovering/Resolving]
  - Major depression [Recovering/Resolving]
  - Phobia [Recovering/Resolving]
  - Feeding disorder [Recovering/Resolving]
  - Catastrophic reaction [Recovered/Resolved]
  - Negative thoughts [Recovering/Resolving]
  - Depression [Recovered/Resolved]
  - Poverty of thought content [Recovering/Resolving]
  - Loss of personal independence in daily activities [Recovered/Resolved]
  - Poor personal hygiene [Recovering/Resolving]
  - Treatment noncompliance [Recovering/Resolving]
  - Apathy [Recovering/Resolving]
  - Weight decreased [Recovering/Resolving]
